FAERS Safety Report 4555162-2 (Version None)
Quarter: 2004Q4

REPORT INFORMATION
  Report Type: 
  Country: None (occurrence: None)
  Receive Date: 20041217
  Receipt Date: 20040804
  Transmission Date: 20050328
  Serious: No
  Sender: FDA-Public Use
  Company Number: 2004-BP-05734BP

PATIENT
  Age: 77 Year
  Sex: Female

DRUGS (10)
  1. SPIRIVA [Suspect]
     Indication: CHRONIC OBSTRUCTIVE AIRWAYS DISEASE
     Dosage: 18 MCG (18 MCG, 1 CAP QD), IH
     Route: 055
     Dates: start: 20040709
  2. FLOVENT [Concomitant]
  3. ALBUTEROL NEBULIZER (SALBUTAMOL) [Concomitant]
  4. OXYGEN (OXYGEN) [Concomitant]
  5. LIPITOR [Concomitant]
  6. EVISTA [Concomitant]
  7. CALCITRIOL [Concomitant]
  8. PAROXETINE HCL [Concomitant]
  9. VITAMINS (VITAMINS) [Concomitant]
  10. CALCIUM (CALCIUM) [Concomitant]

REACTIONS (12)
  - ADJUSTMENT DISORDER [None]
  - DRUG INEFFECTIVE [None]
  - DRY EYE [None]
  - DRY MOUTH [None]
  - DYSPNOEA EXACERBATED [None]
  - DYSPNOEA EXERTIONAL [None]
  - FEELING ABNORMAL [None]
  - FOOD INTOLERANCE [None]
  - HEART RATE INCREASED [None]
  - PALPITATIONS [None]
  - RESPIRATORY RATE INCREASED [None]
  - SPEECH DISORDER [None]
